FAERS Safety Report 13092746 (Version 1)
Quarter: 2017Q1

REPORT INFORMATION
  Report Type: Spontaneous
  Country: US (occurrence: US)
  Receive Date: 20170106
  Receipt Date: 20170106
  Transmission Date: 20170428
  Serious: No
  Sender: FDA-Public Use
  Company Number: US-JNJFOC-20161212163

PATIENT
  Age: 82 Year
  Sex: Female
  Weight: 47.63 kg

DRUGS (6)
  1. NIACIN NO FLUSH [Concomitant]
     Indication: NUTRITIONAL SUPPLEMENTATION
     Dosage: 1 PER DAY, 3 YEARS
     Route: 065
  2. PRESERVISION [Concomitant]
     Active Substance: MINERALS\VITAMINS
     Indication: MACULAR DEGENERATION
     Dosage: 2 PER DAY, 4 YEARS
     Route: 065
  3. IRON [Concomitant]
     Active Substance: IRON
     Indication: ANAEMIA
     Dosage: 1 PER DAY, 1 MONTH
     Route: 065
  4. TYLENOL EXTRA STRENGTH [Suspect]
     Active Substance: ACETAMINOPHEN
     Indication: ARTHRALGIA
     Dosage: 1-2 X WHEN NEEDED
     Route: 048
  5. ARMOUR THYROID [Concomitant]
     Active Substance: THYROID, PORCINE
     Indication: THYROID DISORDER
     Dosage: 1 PER DAY, 5 YEARS
     Route: 065
  6. CALCIUM W/MAGNESIUM [Concomitant]
     Active Substance: CALCIUM\MAGNESIUM
     Indication: NUTRITIONAL SUPPLEMENTATION
     Dosage: 2-3 PER DAY, 2 YEARS
     Route: 065

REACTIONS (2)
  - Underdose [Unknown]
  - Drug effect incomplete [Unknown]

NARRATIVE: CASE EVENT DATE: 201611
